FAERS Safety Report 4816564-X (Version None)
Quarter: 2005Q4

REPORT INFORMATION
  Report Type: 
  Country: None (occurrence: None)
  Receive Date: 20051031
  Receipt Date: 20051031
  Transmission Date: 20060501
  Serious: Yes (Hospitalization)
  Sender: FDA-Public Use
  Company Number: None

PATIENT
  Age: 56 Year
  Sex: Female
  Weight: 70.4 kg

DRUGS (8)
  1. GLEEVEC [Suspect]
     Indication: ENDOCRINE DISORDER
     Dosage: 300 MG QD X21 D
     Dates: start: 20050803, end: 20050919
  2. GLEEVEC [Suspect]
     Indication: NERVOUS SYSTEM DISORDER
     Dosage: 300 MG QD X21 D
     Dates: start: 20050803, end: 20050919
  3. XELODA [Suspect]
     Dosage: 1300 MG BID X 14 D
     Dates: start: 20050803, end: 20050919
  4. ZOMETA [Concomitant]
  5. ZOFRAN [Concomitant]
  6. IMODIUM [Concomitant]
  7. ZIAC [Concomitant]
  8. COMPAZINE [Concomitant]

REACTIONS (5)
  - DIARRHOEA [None]
  - FAECES DISCOLOURED [None]
  - FATIGUE [None]
  - MALAISE [None]
  - TACHYCARDIA [None]
